FAERS Safety Report 18240160 (Version 1)
Quarter: 2020Q3

REPORT INFORMATION
  Report Type: Spontaneous
  Country: IR (occurrence: IR)
  Receive Date: 20200908
  Receipt Date: 20200908
  Transmission Date: 20201103
  Serious: Yes (Hospitalization, Other)
  Sender: FDA-Public Use
  Company Number: IR-APOTEX-2020AP017231

PATIENT
  Age: 7 Year
  Sex: Female

DRUGS (1)
  1. ALPRAZOLAM (ALPRAZOLAM) [Suspect]
     Active Substance: ALPRAZOLAM
     Indication: PRODUCT USED FOR UNKNOWN INDICATION
     Dosage: UNK UNK, SINGLE (MORE THAN 25 TABLETS)
     Route: 065

REACTIONS (3)
  - Suicide attempt [Unknown]
  - Depressed level of consciousness [Recovered/Resolved]
  - Toxicity to various agents [Unknown]
